FAERS Safety Report 24686791 (Version 1)
Quarter: 2024Q4

REPORT INFORMATION
  Report Type: Spontaneous
  Country: RS (occurrence: RS)
  Receive Date: 20241202
  Receipt Date: 20241202
  Transmission Date: 20250115
  Serious: Yes (Disabling, Other)
  Sender: BRISTOL-MYERS SQUIBB COMPANY
  Company Number: RS-BRISTOL-MYERS SQUIBB COMPANY-2024-185679

PATIENT
  Age: 89 Year
  Sex: Male

DRUGS (7)
  1. OPDIVO [Suspect]
     Active Substance: NIVOLUMAB
     Indication: Malignant melanoma
     Dates: start: 202312
  2. OPDIVO [Suspect]
     Active Substance: NIVOLUMAB
     Dates: start: 20240417
  3. AMLOGAL [Concomitant]
     Route: 048
  4. INDAPRES [Concomitant]
     Route: 048
  5. LESTEDON [Concomitant]
     Route: 048
  6. TAMSULOSIN [Concomitant]
     Active Substance: TAMSULOSIN
     Route: 048
  7. BETAHISTINE [Concomitant]
     Active Substance: BETAHISTINE
     Route: 048

REACTIONS (5)
  - Type 2 diabetes mellitus [Not Recovered/Not Resolved]
  - Weight decreased [Unknown]
  - Dyspnoea [Unknown]
  - Decreased appetite [Unknown]
  - Polyuria [Unknown]

NARRATIVE: CASE EVENT DATE: 20240301
